FAERS Safety Report 10606527 (Version 1)
Quarter: 2014Q4

REPORT INFORMATION
  Report Type: Spontaneous
  Country: US (occurrence: None)
  Receive Date: 20141124
  Receipt Date: 20141124
  Transmission Date: 20150529
  Serious: Yes (Other)
  Sender: FDA-Public Use
  Company Number: None

PATIENT
  Age: 56 Year
  Sex: Female
  Weight: 76.2 kg

DRUGS (2)
  1. 1.5% PHENYLEPHRINE/1% LIDOCAINE PF [Suspect]
     Active Substance: LIDOCAINE\PHENYLEPHRINE
     Indication: INFLAMMATION
     Dates: start: 20141118, end: 20141118
  2. 1.5% PHENYLEPHRINE/1% LIDOCAINE PF [Suspect]
     Active Substance: LIDOCAINE\PHENYLEPHRINE
     Indication: NASAL CONGESTION
     Dates: start: 20141118, end: 20141118

REACTIONS (5)
  - Retching [None]
  - Headache [None]
  - Cough [None]
  - Abdominal discomfort [None]
  - Dysgeusia [None]

NARRATIVE: CASE EVENT DATE: 20141118
